FAERS Safety Report 22026767 (Version 1)
Quarter: 2023Q1

REPORT INFORMATION
  Report Type: Spontaneous
  Country: US (occurrence: US)
  Receive Date: 20230223
  Receipt Date: 20230223
  Transmission Date: 20230418
  Serious: No
  Sender: FDA-Public Use
  Company Number: US-TAKEDA-2023TUS017687

PATIENT
  Age: 76 Year
  Sex: Male
  Weight: 105 kg

DRUGS (29)
  1. GAMMAGARD LIQUID [Suspect]
     Active Substance: HUMAN IMMUNOGLOBULIN G
     Indication: Immunodeficiency common variable
     Dosage: UNK
     Route: 065
  2. BETAMETHASONE [Concomitant]
     Active Substance: BETAMETHASONE
  3. TRESIBA [Concomitant]
     Active Substance: INSULIN DEGLUDEC
  4. OZEMPIC [Concomitant]
     Active Substance: SEMAGLUTIDE
  5. ADVAIR HFA [Concomitant]
     Active Substance: FLUTICASONE PROPIONATE\SALMETEROL XINAFOATE
  6. METOLAZONE [Concomitant]
     Active Substance: METOLAZONE
  7. GABAPENTIN [Concomitant]
     Active Substance: GABAPENTIN
  8. TAMSULOSIN [Concomitant]
     Active Substance: TAMSULOSIN
  9. SPIRIVA [Concomitant]
     Active Substance: TIOTROPIUM BROMIDE MONOHYDRATE
  10. ASPIRIN [Concomitant]
     Active Substance: ASPIRIN
  11. TIZANIDINE [Concomitant]
     Active Substance: TIZANIDINE
  12. ATORVASTATIN [Concomitant]
     Active Substance: ATORVASTATIN
  13. MODAFINIL [Concomitant]
     Active Substance: MODAFINIL
  14. ALBUTEROL\IPRATROPIUM [Concomitant]
     Active Substance: ALBUTEROL\IPRATROPIUM
  15. MECLIZINE [Concomitant]
     Active Substance: MECLIZINE HYDROCHLORIDE
  16. MONTELUKAST [Concomitant]
     Active Substance: MONTELUKAST SODIUM
  17. ISOSORBIDE [Concomitant]
     Active Substance: ISOSORBIDE
  18. METHIMAZOLE [Concomitant]
     Active Substance: METHIMAZOLE
  19. RANOLAZINE [Concomitant]
     Active Substance: RANOLAZINE
  20. VITAMIN D3 [Concomitant]
     Active Substance: CHOLECALCIFEROL
  21. VITAMIN B12 [Concomitant]
     Active Substance: CYANOCOBALAMIN
  22. AZELASTINE [Concomitant]
     Active Substance: AZELASTINE
  23. DIPHENHYDRAMINE [Concomitant]
     Active Substance: DIPHENHYDRAMINE
  24. FUROSEMIDE [Concomitant]
     Active Substance: FUROSEMIDE
  25. HIGH DENSITY POLYETHYLENE [Concomitant]
     Active Substance: HIGH DENSITY POLYETHYLENE
  26. PREDNISOLONE [Concomitant]
     Active Substance: PREDNISOLONE
  27. TRAMADOL [Concomitant]
     Active Substance: TRAMADOL
  28. NITROGLYCERIN [Concomitant]
     Active Substance: NITROGLYCERIN
  29. HUMALOG [Concomitant]
     Active Substance: INSULIN LISPRO

REACTIONS (3)
  - Frequent bowel movements [Unknown]
  - Insurance issue [Unknown]
  - Product dose omission issue [Unknown]

NARRATIVE: CASE EVENT DATE: 20230207
